FAERS Safety Report 22706226 (Version 5)
Quarter: 2025Q1

REPORT INFORMATION
  Report Type: Spontaneous
  Country: AT (occurrence: AT)
  Receive Date: 20230714
  Receipt Date: 20250131
  Transmission Date: 20250408
  Serious: Yes (Hospitalization)
  Sender: GE HEALTHCARE
  Company Number: None

PATIENT
  Age: 70 Year
  Sex: Female
  Weight: 73 kg

DRUGS (63)
  1. DATSCAN [Suspect]
     Active Substance: IODINE\IOFLUPANE I-123
     Indication: Diagnostic procedure
     Route: 065
  2. BENSERAZIDE HYDROCHLORIDE\LEVODOPA [Suspect]
     Active Substance: BENSERAZIDE HYDROCHLORIDE\LEVODOPA
     Indication: Parkinson^s disease
     Route: 048
     Dates: start: 20220527, end: 20230607
  3. KETOCONAZOLE [Concomitant]
     Active Substance: KETOCONAZOLE
     Indication: Dry skin
     Route: 065
     Dates: start: 20190118
  4. DESLORATADINE [Concomitant]
     Active Substance: DESLORATADINE
     Route: 065
  5. LORATADINE [Concomitant]
     Active Substance: LORATADINE
     Route: 065
     Dates: start: 20180608
  6. LORATADINE [Concomitant]
     Active Substance: LORATADINE
     Route: 065
     Dates: start: 20180830
  7. LORATADINE [Concomitant]
     Active Substance: LORATADINE
     Route: 065
     Dates: start: 20180928
  8. LORATADINE [Concomitant]
     Active Substance: LORATADINE
     Route: 065
     Dates: start: 20181030
  9. PANTOPRAZOLE [Concomitant]
     Active Substance: PANTOPRAZOLE
     Indication: Pain in extremity
     Route: 065
     Dates: start: 20190211
  10. BIO-H-TIN [Concomitant]
     Indication: Alopecia
     Route: 065
     Dates: start: 201807
  11. EXCIPIAL U LIPOLOTIO [Concomitant]
     Indication: Dry skin
     Route: 065
     Dates: start: 20190118
  12. AMANTADINE SULFATE [Concomitant]
     Active Substance: AMANTADINE SULFATE
     Route: 065
     Dates: start: 20220913, end: 20230607
  13. BETAMETHASONE [Concomitant]
     Active Substance: BETAMETHASONE
     Route: 065
  14. LIDOCAINE HYDROCHLORIDE [Concomitant]
     Active Substance: LIDOCAINE HYDROCHLORIDE
     Route: 065
  15. DICLOFENAC [Concomitant]
     Active Substance: DICLOFENAC
     Indication: Pain in extremity
     Route: 065
     Dates: start: 20190415
  16. HISTAMINE [Concomitant]
     Active Substance: HISTAMINE
     Route: 065
     Dates: start: 20220714
  17. HISTAMINE [Concomitant]
     Active Substance: HISTAMINE
     Route: 065
     Dates: start: 20211120
  18. HISTAMINE [Concomitant]
     Active Substance: HISTAMINE
     Route: 065
     Dates: start: 20210928
  19. HISTAMINE [Concomitant]
     Active Substance: HISTAMINE
     Route: 065
     Dates: start: 20230119
  20. HISTAMINE [Concomitant]
     Active Substance: HISTAMINE
     Route: 065
     Dates: start: 20220803
  21. HISTAMINE [Concomitant]
     Active Substance: HISTAMINE
     Route: 048
     Dates: start: 20220216
  22. HISTAMINE [Concomitant]
     Active Substance: HISTAMINE
     Route: 065
     Dates: start: 20211122
  23. HISTAMINE [Concomitant]
     Active Substance: HISTAMINE
     Route: 065
     Dates: start: 20230221
  24. HISTAMINE [Concomitant]
     Active Substance: HISTAMINE
     Route: 048
     Dates: start: 20210927
  25. HISTAMINE [Concomitant]
     Active Substance: HISTAMINE
     Route: 065
     Dates: start: 20230512
  26. HISTAMINE [Concomitant]
     Active Substance: HISTAMINE
     Route: 065
     Dates: start: 20211123
  27. HISTAMINE [Concomitant]
     Active Substance: HISTAMINE
     Route: 065
     Dates: start: 20220316
  28. HISTAMINE [Concomitant]
     Active Substance: HISTAMINE
     Route: 065
     Dates: start: 20230512
  29. HISTAMINE [Concomitant]
     Active Substance: HISTAMINE
     Route: 065
     Dates: start: 20220804
  30. HISTAMINE [Concomitant]
     Active Substance: HISTAMINE
     Route: 065
     Dates: start: 20230403
  31. HISTAMINE [Concomitant]
     Active Substance: HISTAMINE
     Route: 048
     Dates: start: 20230511
  32. HISTAMINE [Concomitant]
     Active Substance: HISTAMINE
     Route: 065
     Dates: start: 20230404
  33. HISTAMINE [Concomitant]
     Active Substance: HISTAMINE
     Route: 048
     Dates: start: 20230605
  34. HISTAMINE [Concomitant]
     Active Substance: HISTAMINE
     Route: 065
     Dates: start: 20230309
  35. HISTAMINE [Concomitant]
     Active Substance: HISTAMINE
     Route: 065
     Dates: start: 20221026
  36. HISTAMINE [Concomitant]
     Active Substance: HISTAMINE
     Route: 065
     Dates: start: 20221027
  37. HISTAMINE [Concomitant]
     Active Substance: HISTAMINE
     Route: 065
     Dates: start: 20230120
  38. HISTAMINE [Concomitant]
     Active Substance: HISTAMINE
     Route: 065
     Dates: start: 20220317
  39. HISTAMINE [Concomitant]
     Active Substance: HISTAMINE
     Route: 065
     Dates: start: 20220902
  40. HISTAMINE [Concomitant]
     Active Substance: HISTAMINE
  41. MAGNESIUM [Concomitant]
     Active Substance: MAGNESIUM
     Route: 065
  42. CETIRIZINE [Concomitant]
     Active Substance: CETIRIZINE HYDROCHLORIDE
     Route: 065
  43. Leukichtan [Concomitant]
     Indication: Dry skin
     Route: 065
     Dates: start: 20190118
  44. ZYRTEC [Concomitant]
     Active Substance: CETIRIZINE HYDROCHLORIDE
     Route: 065
  45. ACETAMINOPHEN [Concomitant]
     Active Substance: ACETAMINOPHEN
     Route: 065
     Dates: start: 20230512
  46. ACETAMINOPHEN [Concomitant]
     Active Substance: ACETAMINOPHEN
     Route: 065
     Dates: start: 20230222
  47. ACETAMINOPHEN [Concomitant]
     Active Substance: ACETAMINOPHEN
     Route: 065
     Dates: start: 20220804
  48. ACETAMINOPHEN [Concomitant]
     Active Substance: ACETAMINOPHEN
     Route: 065
     Dates: start: 20220513
  49. ACETAMINOPHEN [Concomitant]
     Active Substance: ACETAMINOPHEN
     Route: 065
     Dates: start: 20230804
  50. ACETAMINOPHEN [Concomitant]
     Active Substance: ACETAMINOPHEN
     Dates: start: 20211221
  51. ACETAMINOPHEN [Concomitant]
     Active Substance: ACETAMINOPHEN
     Route: 065
     Dates: start: 20211123
  52. ACETAMINOPHEN [Concomitant]
     Active Substance: ACETAMINOPHEN
     Route: 065
     Dates: start: 20230120
  53. ACETAMINOPHEN [Concomitant]
     Active Substance: ACETAMINOPHEN
     Route: 065
     Dates: start: 20220930
  54. ACETAMINOPHEN [Concomitant]
     Active Substance: ACETAMINOPHEN
     Dates: start: 20210831
  55. ACETAMINOPHEN [Concomitant]
     Active Substance: ACETAMINOPHEN
     Route: 065
     Dates: start: 20230928
  56. ACETAMINOPHEN [Concomitant]
     Active Substance: ACETAMINOPHEN
     Route: 065
     Dates: start: 20230310
  57. ACETAMINOPHEN [Concomitant]
     Active Substance: ACETAMINOPHEN
     Route: 065
     Dates: start: 20230711
  58. ACETAMINOPHEN [Concomitant]
     Active Substance: ACETAMINOPHEN
     Route: 065
     Dates: start: 20221121
  59. ACETAMINOPHEN [Concomitant]
     Active Substance: ACETAMINOPHEN
     Dates: start: 20220118
  60. ACETAMINOPHEN [Concomitant]
     Active Substance: ACETAMINOPHEN
     Route: 065
     Dates: start: 20231024
  61. ACETAMINOPHEN [Concomitant]
     Active Substance: ACETAMINOPHEN
     Route: 065
     Dates: start: 20240119
  62. ACETAMINOPHEN [Concomitant]
     Active Substance: ACETAMINOPHEN
     Route: 065
     Dates: start: 20240216
  63. CANDESARTAN [Concomitant]
     Active Substance: CANDESARTAN
     Indication: Hypertension
     Route: 065
     Dates: start: 20220821, end: 20230607

REACTIONS (1)
  - Dyskinesia [Not Recovered/Not Resolved]

NARRATIVE: CASE EVENT DATE: 20230606
